FAERS Safety Report 8064621-X (Version None)
Quarter: 2012Q1

REPORT INFORMATION
  Report Type: 
  Country: None (occurrence: None)
  Receive Date: 20120123
  Receipt Date: 20120118
  Transmission Date: 20120608
  Serious: Yes (Death)
  Sender: FDA-Public Use
  Company Number: SE-ASTRAZENECA-2012SE03766

PATIENT

DRUGS (3)
  1. SEROQUEL [Suspect]
     Route: 048
  2. SEROQUEL [Suspect]
     Dosage: COMBINED DOSE OF SEROQUEL/SEROQUEL XR WAS 1800 MG
     Route: 048
  3. AKINETON [Suspect]

REACTIONS (4)
  - INCORRECT DOSE ADMINISTERED [None]
  - CONSTIPATION [None]
  - TOXICITY TO VARIOUS AGENTS [None]
  - CARDIAC ARREST [None]
